FAERS Safety Report 22637988 (Version 1)
Quarter: 2023Q2

REPORT INFORMATION
  Report Type: Spontaneous
  Country: US (occurrence: None)
  Receive Date: 20230623
  Receipt Date: 20230623
  Transmission Date: 20230722
  Serious: No
  Sender: FDA-Public Use
  Company Number: None

PATIENT
  Age: 55 Year
  Sex: Female
  Weight: 89.1 kg

DRUGS (25)
  1. MELOXICAM [Suspect]
     Active Substance: MELOXICAM
     Indication: Ehlers-Danlos syndrome
     Dosage: OTHER QUANTITY : .50 TABLET(S);?FREQUENCY : DAILY;?
     Route: 048
  2. chromalin sodium oral [Concomitant]
  3. chromalin sodium nasal [Concomitant]
  4. nasocrom [Concomitant]
  5. FLUTICASONE [Concomitant]
     Active Substance: FLUTICASONE
  6. PROPIONATE [Concomitant]
  7. LEVALBUTEROL [Concomitant]
     Active Substance: LEVALBUTEROL
  8. VALACYCLOVIR [Concomitant]
     Active Substance: VALACYCLOVIR HYDROCHLORIDE
  9. HYOSCYAMINE [Concomitant]
     Active Substance: HYOSCYAMINE
  10. FAMOTIDINE [Concomitant]
     Active Substance: FAMOTIDINE
  11. DESLORATADINE [Concomitant]
     Active Substance: DESLORATADINE
  12. ONDANSETRON [Concomitant]
     Active Substance: ONDANSETRON
  13. CALCIUM CITRATE [Concomitant]
     Active Substance: CALCIUM CITRATE
  14. DAILY-VITE [Concomitant]
  15. VITAMIN D [Concomitant]
     Active Substance: VITAMIN D NOS
  16. l-thionine [Concomitant]
  17. BENADRYL [Concomitant]
     Active Substance: DIPHENHYDRAMINE HYDROCHLORIDE
  18. gluten digest [Concomitant]
  19. LOPERAMIDE [Concomitant]
     Active Substance: LOPERAMIDE
  20. L-glutamine [Concomitant]
  21. OREGANO LEAF OIL [Concomitant]
     Active Substance: OREGANO LEAF OIL
  22. OMEGA 3 [Concomitant]
     Active Substance: CAPSAICIN
  23. TYLENOL [Concomitant]
     Active Substance: ACETAMINOPHEN
  24. ELECTROLYTES NOS [Concomitant]
     Active Substance: ELECTROLYTES NOS
  25. QUERCITIN [Concomitant]

REACTIONS (24)
  - Tinnitus [None]
  - Depression [None]
  - Hypertension [None]
  - Eye disorder [None]
  - Acne [None]
  - Influenza like illness [None]
  - Face oedema [None]
  - Premature ageing [None]
  - Pollakiuria [None]
  - Dyspnoea [None]
  - Abdominal distension [None]
  - Weight increased [None]
  - Ascites [None]
  - Skin disorder [None]
  - Dizziness [None]
  - Thinking abnormal [None]
  - Cognitive disorder [None]
  - Vision blurred [None]
  - Aphasia [None]
  - Nightmare [None]
  - Paraesthesia [None]
  - Pruritus [None]
  - Dry mouth [None]
  - Alopecia [None]

NARRATIVE: CASE EVENT DATE: 20230618
